FAERS Safety Report 14385500 (Version 1)
Quarter: 2018Q1

REPORT INFORMATION
  Report Type: Spontaneous
  Country: US (occurrence: US)
  Receive Date: 20180115
  Receipt Date: 20180115
  Transmission Date: 20180509
  Serious: Yes (Other)
  Sender: FDA-Public Use
  Company Number: US-SA-2016SA233745

PATIENT
  Age: 63 Year
  Sex: Female
  Weight: 89.3 kg

DRUGS (12)
  1. METFORMIN [Concomitant]
     Active Substance: METFORMIN HYDROCHLORIDE
  2. LOSARTAN. [Concomitant]
     Active Substance: LOSARTAN
  3. LIPITOR [Concomitant]
     Active Substance: ATORVASTATIN CALCIUM
  4. TAXOTERE [Suspect]
     Active Substance: DOCETAXEL
     Indication: BREAST CANCER FEMALE
     Route: 042
     Dates: start: 20140812, end: 20140812
  5. LEXAPRO [Concomitant]
     Active Substance: ESCITALOPRAM OXALATE
  6. TAXOTERE [Suspect]
     Active Substance: DOCETAXEL
     Indication: BREAST CANCER FEMALE
     Route: 042
     Dates: start: 20140505, end: 20140505
  7. HYDROCHLOROTHIAZIDE. [Concomitant]
     Active Substance: HYDROCHLOROTHIAZIDE
  8. COREG [Concomitant]
     Active Substance: CARVEDILOL
  9. CYCLOPHOSPHAMIDE. [Concomitant]
     Active Substance: CYCLOPHOSPHAMIDE
  10. GLIPIZIDE. [Concomitant]
     Active Substance: GLIPIZIDE
  11. HUMALOG [Concomitant]
     Active Substance: INSULIN LISPRO
  12. PAXIL [Concomitant]
     Active Substance: PAROXETINE HYDROCHLORIDE

REACTIONS (9)
  - Emotional distress [Unknown]
  - Hair colour changes [Unknown]
  - Alopecia [Not Recovered/Not Resolved]
  - Impaired quality of life [Unknown]
  - Psychological trauma [Unknown]
  - Injury [Unknown]
  - Hair texture abnormal [Unknown]
  - Anxiety [Unknown]
  - Pain [Unknown]

NARRATIVE: CASE EVENT DATE: 201502
